FAERS Safety Report 6735475-6 (Version None)
Quarter: 2010Q2

REPORT INFORMATION
  Report Type: 
  Country: None (occurrence: None)
  Receive Date: 20100521
  Receipt Date: 20100518
  Transmission Date: 20101027
  Serious: Yes (Hospitalization)
  Sender: FDA-Public Use
  Company Number: US-BRISTOL-MYERS SQUIBB COMPANY-14963326

PATIENT
  Age: 68 Year
  Sex: Male
  Weight: 91 kg

DRUGS (28)
  1. PACLITAXEL [Suspect]
     Indication: NON-SMALL CELL LUNG CANCER
     Dosage: TAKEN OFF STUDY ON 29OCT09
     Route: 042
     Dates: start: 20090930, end: 20091021
  2. CARBOPLATIN [Suspect]
     Indication: NON-SMALL CELL LUNG CANCER
     Dosage: 6 DOSAGEFORM = 6 AUC TAKEN OFF STUDY ON 29OCT09
     Route: 042
     Dates: start: 20090930, end: 20090930
  3. BEVACIZUMAB [Suspect]
     Indication: NON-SMALL CELL LUNG CANCER
     Dosage: TAKEN OFF STUDY ON 29OCT09
     Route: 042
     Dates: start: 20090930, end: 20090930
  4. HALDOL [Concomitant]
     Indication: AGITATION
     Dates: start: 20091201, end: 20091211
  5. XENADERM [Concomitant]
     Indication: PROPHYLAXIS
     Dates: start: 20091201, end: 20091211
  6. ROBITUSSIN [Concomitant]
     Indication: COUGH
     Dates: start: 20091208, end: 20091211
  7. HYDROMET [Concomitant]
     Indication: COUGH
     Dates: start: 20091208, end: 20091211
  8. BENADRYL [Concomitant]
     Indication: ORAL PAIN
     Dates: start: 20091014, end: 20091211
  9. MAALOX [Concomitant]
     Indication: ORAL PAIN
     Dates: start: 20091127, end: 20091211
  10. XYLOCAINE [Concomitant]
     Indication: ORAL PAIN
     Dates: start: 20091127, end: 20091211
  11. ZOVIRAX [Concomitant]
     Indication: PROPHYLAXIS
     Dates: start: 20091130, end: 20091211
  12. HEPARIN [Concomitant]
     Dates: start: 20091101
  13. WARFARIN SODIUM [Concomitant]
     Dates: start: 20091101
  14. OMEPRAZOLE [Concomitant]
  15. CLOPIDOGREL BISULFATE [Concomitant]
  16. RAMIPRIL [Concomitant]
     Dates: start: 20091029
  17. LOVASTATIN [Concomitant]
  18. COMPAZINE [Concomitant]
     Dates: start: 20090930
  19. COMBIVENT [Concomitant]
     Dates: start: 20091029
  20. DEXAMETHASONE [Concomitant]
     Dates: start: 20090924
  21. EMEND [Concomitant]
     Dates: start: 20090924
  22. ACETAMINOPHEN AND HYDROCODONE BITARTRATE [Concomitant]
     Dates: start: 20091029
  23. LIDOCAINE HCL VISCOUS [Concomitant]
     Dates: start: 20091014
  24. NYSTATIN [Concomitant]
     Dates: start: 20091014
  25. ASPIRIN [Concomitant]
  26. FOLIC ACID [Concomitant]
     Dates: start: 20091109
  27. GABAPENTIN [Concomitant]
     Dates: start: 20091021
  28. ENOXAPARIN SODIUM [Concomitant]

REACTIONS (7)
  - ATRIAL FIBRILLATION [None]
  - CHRONIC OBSTRUCTIVE PULMONARY DISEASE [None]
  - DEEP VEIN THROMBOSIS [None]
  - PNEUMONIA [None]
  - PULMONARY EMBOLISM [None]
  - RENAL FAILURE ACUTE [None]
  - TUMOUR LYSIS SYNDROME [None]
